FAERS Safety Report 25379765 (Version 1)
Quarter: 2025Q2

REPORT INFORMATION
  Report Type: Spontaneous
  Country: US (occurrence: None)
  Receive Date: 20250530
  Receipt Date: 20250530
  Transmission Date: 20250716
  Serious: No
  Sender: FDA-CTU
  Company Number: None

PATIENT
  Sex: Male
  Weight: 3.15 kg

DRUGS (1)
  1. BEYFORTUS [Suspect]
     Active Substance: NIRSEVIMAB-ALIP
     Route: 030

REACTIONS (3)
  - Drug monitoring procedure incorrectly performed [None]
  - Incorrect dose administered [None]
  - Drug monitoring procedure not performed [None]

NARRATIVE: CASE EVENT DATE: 20241231
